FAERS Safety Report 10019836 (Version 1)
Quarter: 2014Q1

REPORT INFORMATION
  Report Type: Spontaneous
  Country: US (occurrence: US)
  Receive Date: 20140318
  Receipt Date: 20140318
  Transmission Date: 20141002
  Serious: Yes (Other)
  Sender: FDA-Public Use
  Company Number: US-PFIZER INC-2014076313

PATIENT
  Age: 16 Year
  Sex: Female

DRUGS (2)
  1. NEURONTIN [Suspect]
     Indication: COMPLEX REGIONAL PAIN SYNDROME
     Dosage: AT LOW DOSE
  2. NEURONTIN [Suspect]
     Dosage: 2500 MG, DAILY

REACTIONS (3)
  - Drug tolerance [Unknown]
  - Drug withdrawal syndrome [Unknown]
  - Pain [Unknown]
